FAERS Safety Report 12781582 (Version 1)
Quarter: 2016Q3

REPORT INFORMATION
  Report Type: Spontaneous
  Country: US (occurrence: US)
  Receive Date: 20160926
  Receipt Date: 20160926
  Transmission Date: 20161109
  Serious: Yes (Other)
  Sender: FDA-Public Use
  Company Number: US-ABBVIE-16P-163-1735705-00

PATIENT
  Sex: Female

DRUGS (1)
  1. SYNTHROID [Suspect]
     Active Substance: LEVOTHYROXINE SODIUM
     Indication: PRODUCT USED FOR UNKNOWN INDICATION
     Route: 048

REACTIONS (7)
  - Heart rate decreased [Unknown]
  - Weight increased [Unknown]
  - Constipation [Unknown]
  - Asthenia [Unknown]
  - Drug ineffective [Unknown]
  - Cardiac pacemaker insertion [Unknown]
  - Alopecia [Unknown]
